FAERS Safety Report 5122006-X (Version None)
Quarter: 2006Q4

REPORT INFORMATION
  Report Type: 
  Country: None (occurrence: None)
  Receive Date: 20061004
  Receipt Date: 20061004
  Transmission Date: 20070319
  Serious: Yes (Hospitalization)
  Sender: FDA-Public Use
  Company Number: None

PATIENT
  Age: 77 Year
  Sex: Male
  Weight: 79.4 kg

DRUGS (6)
  1. ENOXAPARIN SODIUM [Suspect]
     Dosage: 100 MG QD SUBCUTAN
     Route: 058
     Dates: start: 20060601, end: 20060611
  2. ASPIRIN [Concomitant]
  3. SIMVASTATIN [Concomitant]
  4. DOCUSATE SODIUM (COLACE) [Concomitant]
  5. FERROUS SULFATE TAB [Concomitant]
  6. FOLIC ACID [Concomitant]

REACTIONS (1)
  - RASH [None]
